FAERS Safety Report 5199572-1 (Version None)
Quarter: 2007Q1

REPORT INFORMATION
  Report Type: 
  Country: None (occurrence: None)
  Receive Date: 20070103
  Receipt Date: 20070103
  Transmission Date: 20070707
  Serious: Yes (Other)
  Sender: FDA-Public Use
  Company Number: None

PATIENT
  Age: 68 Year
  Sex: Female
  Weight: 72.5755 kg

DRUGS (16)
  1. FACTIVE [Suspect]
     Indication: ACUTE SINUSITIS
     Dosage: 320 MG DAILY PO
     Route: 048
     Dates: start: 20060810, end: 20060816
  2. DAYPRO [Concomitant]
  3. CLARINEX [Concomitant]
  4. OSCAL +D [Concomitant]
  5. OSCAL [Concomitant]
  6. CALCIUM [Concomitant]
  7. MAGNESIUM [Concomitant]
  8. ZINC [Concomitant]
  9. OMEGA 3 [Concomitant]
  10. CENTRUM SILVER [Concomitant]
  11. CINNAMON BARK [Concomitant]
  12. OCUVITE [Concomitant]
  13. GLUCOSAMINE [Concomitant]
  14. CHONDROITIN [Concomitant]
  15. COQ10 [Concomitant]
  16. FISH OIL [Concomitant]

REACTIONS (4)
  - ARTHRALGIA [None]
  - GAIT DISTURBANCE [None]
  - MOVEMENT DISORDER [None]
  - PAIN [None]
